FAERS Safety Report 17756713 (Version 1)
Quarter: 2020Q2

REPORT INFORMATION
  Report Type: Spontaneous
  Country: US (occurrence: US)
  Receive Date: 20200507
  Receipt Date: 20200507
  Transmission Date: 20200714
  Serious: No
  Sender: FDA-Public Use
  Company Number: None

PATIENT
  Sex: Female

DRUGS (2)
  1. NA [Concomitant]
     Active Substance: SODIUM
  2. XOLAIR [Suspect]
     Active Substance: OMALIZUMAB
     Indication: IDIOPATHIC URTICARIA
     Dosage: ?          OTHER FREQUENCY:QM;?
     Route: 058
     Dates: start: 19181030

REACTIONS (2)
  - Maternal exposure during pregnancy [None]
  - Pregnancy [None]
